FAERS Safety Report 10332769 (Version 1)
Quarter: 2014Q3

REPORT INFORMATION
  Report Type: Spontaneous
  Country: BR (occurrence: BR)
  Receive Date: 20140722
  Receipt Date: 20140722
  Transmission Date: 20150326
  Serious: Yes (Hospitalization, Other)
  Sender: FDA-Public Use
  Company Number: BR-PFIZER INC-2014198435

PATIENT
  Age: 71 Year
  Sex: Female
  Weight: 52 kg

DRUGS (5)
  1. XALATAN [Suspect]
     Active Substance: LATANOPROST
     Indication: INTRAOCULAR PRESSURE TEST ABNORMAL
     Dosage: 1 DROP IN EACH EYE (3 UG), 1X/DAY
     Route: 047
     Dates: start: 2004
  2. SOMALGIN [Concomitant]
     Active Substance: ASPIRIN\DIHYDROXYALUMINUM AMINOACETATE ANHYDROUS\MAGNESIUM CARBONATE
     Indication: CARDIAC DISORDER
     Dosage: 1 TABLET OF 100 MG, DAILY
     Dates: start: 201401
  3. PURAN [Concomitant]
     Active Substance: LEVOTHYROXINE SODIUM
     Indication: THYROID DISORDER
     Dosage: 1 TABLET (STRENGTH 75, UNIT NOT PROVIDED) DAILY (FASTING)
     Dates: start: 1994
  4. RIVOTRIL [Concomitant]
     Active Substance: CLONAZEPAM
     Indication: PANIC DISORDER
     Dosage: 1 TABLET OF 0.5 MG, DAILY
     Dates: start: 2004
  5. AZORGA [Concomitant]
     Active Substance: BRINZOLAMIDE\TIMOLOL MALEATE
     Indication: INTRAOCULAR PRESSURE INCREASED
     Dosage: 1 DROP IN EACH EYE ONCE DAILY
     Dates: start: 201405

REACTIONS (4)
  - Cardiac disorder [Unknown]
  - Cataract [Unknown]
  - Intentional product misuse [Unknown]
  - Intraocular pressure increased [Unknown]
